FAERS Safety Report 10138551 (Version 2)
Quarter: 2017Q3

REPORT INFORMATION
  Report Type: Spontaneous
  Country: US (occurrence: US)
  Receive Date: 20140429
  Receipt Date: 20170731
  Transmission Date: 20171127
  Serious: No
  Sender: FDA-Public Use
  Company Number: US-PFIZER INC-2014114776

PATIENT
  Sex: Female

DRUGS (3)
  1. PREDNISONE. [Suspect]
     Active Substance: PREDNISONE
     Dosage: UNK
  2. FLAGYL [Suspect]
     Active Substance: METRONIDAZOLE\METRONIDAZOLE HYDROCHLORIDE
     Dosage: UNK
  3. CORTISONE [Suspect]
     Active Substance: CORTISONE\HYDROCORTISONE
     Dosage: UNK

REACTIONS (1)
  - Drug hypersensitivity [Unknown]
